FAERS Safety Report 18103502 (Version 1)
Quarter: 2020Q3

REPORT INFORMATION
  Report Type: Spontaneous
  Country: US (occurrence: US)
  Receive Date: 20200803
  Receipt Date: 20200803
  Transmission Date: 20201103
  Serious: Yes (Hospitalization)
  Sender: FDA-Public Use
  Company Number: US-STRIDES ARCOLAB LIMITED-2020SP001409

PATIENT
  Age: 71 Year
  Sex: Male

DRUGS (2)
  1. MYCOPHENOLATE MOFETIL. [Suspect]
     Active Substance: MYCOPHENOLATE MOFETIL
     Indication: LIVER TRANSPLANT
     Dosage: 250 MILLIGRAM, BID
     Route: 065
  2. TACROLIMUS. [Suspect]
     Active Substance: TACROLIMUS
     Indication: LIVER TRANSPLANT
     Dosage: 1 MILLIGRAM, BID
     Route: 065

REACTIONS (10)
  - Hyperhidrosis [Unknown]
  - Lymphadenopathy [Recovered/Resolved]
  - Hepatic lesion [Unknown]
  - Dyspnoea exertional [Unknown]
  - Fatigue [Unknown]
  - Weight decreased [Unknown]
  - Anaemia [Unknown]
  - Pyrexia [Unknown]
  - Cough [Unknown]
  - Double hit lymphoma [Unknown]
